FAERS Safety Report 19845300 (Version 1)
Quarter: 2021Q3

REPORT INFORMATION
  Report Type: Spontaneous
  Country: US (occurrence: US)
  Receive Date: 20210916
  Receipt Date: 20210916
  Transmission Date: 20211014
  Serious: No
  Sender: FDA-Public Use
  Company Number: US-JACOBUS PHARMACEUTICAL COMPANY, INC.-2118462

PATIENT
  Age: 79 Year
  Sex: Female

DRUGS (5)
  1. MAXZIDE [Concomitant]
     Active Substance: HYDROCHLOROTHIAZIDE\TRIAMTERENE
  2. TYLENOL [Concomitant]
     Active Substance: ACETAMINOPHEN
  3. RUZURGI [Suspect]
     Active Substance: AMIFAMPRIDINE
     Indication: MYASTHENIC SYNDROME
     Route: 048
     Dates: start: 20191004
  4. NEURONTIN [Concomitant]
     Active Substance: GABAPENTIN
  5. NORVASC [Concomitant]
     Active Substance: AMLODIPINE BESYLATE

REACTIONS (5)
  - Nausea [Unknown]
  - Crying [Unknown]
  - Feeling abnormal [Unknown]
  - Asthenia [Unknown]
  - Abdominal pain upper [Unknown]
